FAERS Safety Report 4526725-5 (Version None)
Quarter: 2004Q4

REPORT INFORMATION
  Report Type: 
  Country: None (occurrence: None)
  Receive Date: 20041214
  Receipt Date: 20041203
  Transmission Date: 20050328
  Serious: Yes (Other)
  Sender: FDA-Public Use
  Company Number: SE-JNJFOC-20041201336

PATIENT
  Age: 15 Year
  Sex: Male

DRUGS (4)
  1. CONCERTA [Suspect]
     Indication: ATTENTION DEFICIT/HYPERACTIVITY DISORDER
     Route: 049
     Dates: start: 20040329, end: 20041116
  2. ZYRLEX [Concomitant]
     Route: 065
  3. SERETIDE DISKUS [Concomitant]
     Route: 065
  4. SERETIDE DISKUS [Concomitant]
     Route: 065

REACTIONS (4)
  - ABDOMINAL PAIN [None]
  - AGGRESSION [None]
  - ANOREXIA [None]
  - SUICIDAL IDEATION [None]
